FAERS Safety Report 10031021 (Version 1)
Quarter: 2014Q1

REPORT INFORMATION
  Report Type: Report from Study
  Country: US (occurrence: US)
  Receive Date: 20140324
  Receipt Date: 20140324
  Transmission Date: 20141002
  Serious: Yes (Other)
  Sender: FDA-Public Use
  Company Number: US-ROCHE-1364657

PATIENT
  Sex: Male
  Weight: 42.5 kg

DRUGS (5)
  1. NUTROPIN [Suspect]
     Indication: HYPOPITUITARISM
     Route: 058
     Dates: end: 201301
  2. NUTROPIN [Suspect]
     Route: 058
     Dates: start: 201301, end: 201305
  3. NUTROPIN [Suspect]
     Route: 058
     Dates: start: 201305
  4. LEVOTHYROXINE [Concomitant]
     Indication: HYPOPITUITARISM
     Route: 048
  5. TESTOSTERONE [Concomitant]
     Route: 065
     Dates: start: 201309

REACTIONS (5)
  - Bone density decreased [Unknown]
  - Hypothyroidism [Unknown]
  - Visual acuity reduced [Unknown]
  - Headache [Unknown]
  - Drug dose omission [Unknown]
